FAERS Safety Report 9231835 (Version 1)
Quarter: 2013Q2

REPORT INFORMATION
  Report Type: Spontaneous
  Country: CN (occurrence: CN)
  Receive Date: 20130415
  Receipt Date: 20130415
  Transmission Date: 20140414
  Serious: Yes (Other)
  Sender: FDA-Public Use
  Company Number: CN-BAYER-2013-047055

PATIENT
  Sex: 0

DRUGS (1)
  1. BAYASPIRIN [Suspect]
     Dosage: UNK

REACTIONS (1)
  - Renal failure [None]
